FAERS Safety Report 16403834 (Version 2)
Quarter: 2019Q2

REPORT INFORMATION
  Report Type: Other
  Country: ES (occurrence: ES)
  Receive Date: 20190607
  Receipt Date: 20190621
  Transmission Date: 20190711
  Serious: Yes (Other)
  Sender: FDA-Public Use
  Company Number: ES-EMD SERONO-9094741

PATIENT
  Age: 65 Year
  Sex: Male

DRUGS (1)
  1. AVELUMAB [Suspect]
     Active Substance: AVELUMAB
     Indication: LUNG CANCER METASTATIC

REACTIONS (2)
  - Off label use [Unknown]
  - Ocular myasthenia [Recovering/Resolving]
